FAERS Safety Report 13180504 (Version 1)
Quarter: 2017Q1

REPORT INFORMATION
  Report Type: Spontaneous
  Country: CN (occurrence: CN)
  Receive Date: 20170202
  Receipt Date: 20170202
  Transmission Date: 20170428
  Serious: Yes (Other)
  Sender: FDA-Public Use
  Company Number: CN-JNJFOC-20170125648

PATIENT

DRUGS (1)
  1. ITRACONAZOLE. [Suspect]
     Active Substance: ITRACONAZOLE
     Indication: FUNGAL INFECTION
     Dosage: THE COURSE OF TREATMENT WAS 1~3 MONTHS, DEPENDING ON THE EFFICACY AND SEVERITY OF THE DISEASE.
     Route: 048

REACTIONS (1)
  - Renal failure [Recovered/Resolved]
